FAERS Safety Report 9494914 (Version 1)
Quarter: 2013Q3

REPORT INFORMATION
  Report Type: Report from Study
  Country: LS (occurrence: LS)
  Receive Date: 20130903
  Receipt Date: 20130903
  Transmission Date: 20140515
  Serious: Yes (Other)
  Sender: FDA-Public Use
  Company Number: LS-B.I. PHARMACEUTICALS,INC./RIDGEFIELD-2013-BI-26813GD

PATIENT
  Sex: Male

DRUGS (5)
  1. VIRAMUNE [Suspect]
     Indication: HIV INFECTION
  2. D4T [Suspect]
     Indication: HIV INFECTION
  3. 3TC [Suspect]
     Indication: HIV INFECTION
  4. EFAVIRENZ [Suspect]
     Indication: HIV INFECTION
  5. ANTITUBERCULOSIS DRUGS [Suspect]
     Indication: TUBERCULOSIS

REACTIONS (4)
  - Tuberculosis [Recovered/Resolved]
  - Tuberculosis [Recovered/Resolved]
  - Drug resistance [Unknown]
  - Viral mutation identified [Unknown]
